FAERS Safety Report 9746561 (Version 1)
Quarter: 2013Q4

REPORT INFORMATION
  Report Type: Spontaneous
  Country: US (occurrence: None)
  Receive Date: 20131205
  Receipt Date: 20131205
  Transmission Date: 20140711
  Serious: Yes (Hospitalization)
  Sender: FDA-Public Use
  Company Number: VAL_02835_2013

PATIENT
  Age: 46 Year
  Sex: Female

DRUGS (5)
  1. ISOCARBOXAZID [Suspect]
     Indication: BIPOLAR DISORDER
     Dosage: DF
  2. PHENYLETHYLAMINE HCL [Suspect]
     Indication: DEPRESSION
  3. LITHIUM [Concomitant]
  4. LORAZEPAM [Concomitant]
  5. TRAZODONE [Concomitant]

REACTIONS (4)
  - Stress cardiomyopathy [None]
  - Myocardial infarction [None]
  - Toxicity to various agents [None]
  - Depression [None]
